FAERS Safety Report 19011056 (Version 1)
Quarter: 2021Q1

REPORT INFORMATION
  Report Type: Report from Study
  Country: IT (occurrence: IT)
  Receive Date: 20210316
  Receipt Date: 20210316
  Transmission Date: 20210420
  Serious: Yes (Other)
  Sender: FDA-Public Use
  Company Number: IT-TEVA-2021-IT-1889316

PATIENT
  Age: 57 Year
  Sex: Female
  Weight: 48 kg

DRUGS (7)
  1. ORAMORPH [Concomitant]
     Active Substance: MORPHINE SULFATE
     Indication: PAIN
     Route: 048
  2. CARBOPLATINO TEVA 10 MG/ML [Concomitant]
     Active Substance: CARBOPLATIN
     Indication: OVARIAN CANCER
     Dosage: 434.4 MG
     Route: 042
     Dates: start: 20210113
  3. PERINDOPRIL [Concomitant]
     Active Substance: PERINDOPRIL
     Indication: HYPERTENSION
     Dosage: 4 MG
     Route: 048
  4. LOBIVON 5 MG COMPRESSE [Concomitant]
     Active Substance: NEBIVOLOL HYDROCHLORIDE
     Indication: HYPERTENSION
     Dosage: 2.5 MG
     Route: 048
  5. TARGIN [Concomitant]
     Active Substance: NALOXONE HYDROCHLORIDE\OXYCODONE HYDROCHLORIDE
     Indication: PAIN
     Dosage: 40 MG
     Route: 048
  6. PACLITAXEL TEVA ITALIA [Suspect]
     Active Substance: PACLITAXEL
     Indication: OVARIAN CANCER
     Dosage: 253.8 MG
     Route: 042
     Dates: start: 20210113
  7. INHIXA 10,000 IU (100 MG)/1 ML SOLUTION FOR INJECTION [Concomitant]
     Active Substance: ENOXAPARIN SODIUM
     Dosage: 4000 KU
     Route: 058

REACTIONS (4)
  - Throat tightness [Recovered/Resolved]
  - Feeling hot [Recovered/Resolved]
  - Infusion related reaction [Recovered/Resolved]
  - Flushing [Recovered/Resolved]

NARRATIVE: CASE EVENT DATE: 20210113
